FAERS Safety Report 5680000-4 (Version None)
Quarter: 2008Q1

REPORT INFORMATION
  Report Type: 
  Country: None (occurrence: None)
  Receive Date: 20080325
  Receipt Date: 20080325
  Transmission Date: 20080703
  Serious: Yes (Hospitalization)
  Sender: FDA-Public Use
  Company Number: None

PATIENT
  Sex: Female
  Weight: 64 kg

DRUGS (4)
  1. ELOXATIN [Suspect]
     Dosage: 148 MG
  2. FLUOROURACIL [Suspect]
     Dosage: 9660 MG
  3. BEVACIZUMAB (RHUMAB VEGF) [Suspect]
     Dosage: 620 MG
  4. LEUCOVORIN CALCIUM [Suspect]
     Dosage: 1080 MG

REACTIONS (4)
  - ACTIVITIES OF DAILY LIVING IMPAIRED [None]
  - GAIT DISTURBANCE [None]
  - HYPOAESTHESIA [None]
  - PARAESTHESIA [None]
